FAERS Safety Report 6851007-6 (Version None)
Quarter: 2010Q3

REPORT INFORMATION
  Report Type: 
  Country: None (occurrence: None)
  Receive Date: 20100716
  Receipt Date: 20071129
  Transmission Date: 20110219
  Serious: No
  Sender: FDA-Public Use
  Company Number: US-PFIZER INC-2007090698

PATIENT
  Sex: Male
  Weight: 95.909 kg

DRUGS (11)
  1. CHANTIX [Suspect]
     Indication: SMOKING CESSATION THERAPY
     Dates: start: 20071025
  2. ROSIGLITAZONE [Concomitant]
  3. MIRTAZAPINE [Concomitant]
  4. LOSARTAN POSTASSIUM [Concomitant]
  5. ATENOLOL [Concomitant]
  6. PIROXICAM [Concomitant]
  7. OMEPRAZOLE [Concomitant]
  8. HYDROCODONE [Concomitant]
  9. FENOFIBRATE [Concomitant]
  10. INSULIN [Concomitant]
  11. ALL OTHER THERAPEUTIC PRODUCTS [Concomitant]

REACTIONS (1)
  - DRUG DISPENSING ERROR [None]
